FAERS Safety Report 7398740-8 (Version None)
Quarter: 2011Q2

REPORT INFORMATION
  Report Type: 
  Country: None (occurrence: None)
  Receive Date: 20110401
  Receipt Date: 20110401
  Transmission Date: 20111010
  Serious: Yes (Disabling, Other)
  Sender: FDA-Public Use
  Company Number: None

PATIENT
  Age: 30 Month
  Sex: Female
  Weight: 13.6079 kg

DRUGS (1)
  1. LORATADINE [Suspect]
     Indication: RHINORRHOEA
     Dosage: 1 TEASPOON EVERY 24 HOURS PO
     Route: 048
     Dates: start: 20110205, end: 20110205

REACTIONS (4)
  - HEART RATE INCREASED [None]
  - TREMOR [None]
  - SOMNOLENCE [None]
  - PYREXIA [None]
